FAERS Safety Report 4701257-X (Version None)
Quarter: 2005Q2

REPORT INFORMATION
  Report Type: 
  Country: None (occurrence: None)
  Receive Date: 20050628
  Receipt Date: 20050131
  Transmission Date: 20051028
  Serious: Yes (Hospitalization)
  Sender: FDA-Public Use
  Company Number: US-MERCK-0502USA00110

PATIENT
  Age: 64 Year
  Sex: Male
  Weight: 74 kg

DRUGS (14)
  1. VIOXX [Suspect]
     Indication: SHOULDER PAIN
     Route: 048
     Dates: start: 20010201
  2. VIOXX [Suspect]
     Route: 065
     Dates: start: 20010713, end: 20030101
  3. VIOXX [Suspect]
     Route: 048
     Dates: start: 20010101, end: 20010701
  4. ASPIRIN [Concomitant]
     Indication: CARDIAC DISORDER
     Route: 065
     Dates: start: 19811101
  5. ASPIRIN [Concomitant]
     Indication: TRANSIENT ISCHAEMIC ATTACK
     Route: 065
     Dates: start: 19811101
  6. LIPITOR [Concomitant]
     Indication: BLOOD CHOLESTEROL INCREASED
     Route: 065
     Dates: start: 20010101
  7. PRILOSEC [Concomitant]
     Route: 065
     Dates: start: 20010101
  8. ARMOUR THYROID TABLETS [Concomitant]
     Indication: HYPOTHYROIDISM
     Route: 065
     Dates: start: 20010101
  9. AMBIEN [Concomitant]
     Indication: SLEEP DISORDER
     Route: 065
     Dates: start: 20010101
  10. DIAZEPAM [Concomitant]
     Indication: SLEEP DISORDER
     Route: 065
     Dates: start: 20010101
  11. FOLIC ACID [Concomitant]
     Route: 065
     Dates: start: 20010101
  12. TIMOPTIC [Concomitant]
     Indication: GLAUCOMA
     Route: 047
     Dates: start: 20010101
  13. VIAGRA [Concomitant]
     Route: 065
     Dates: start: 20010109
  14. VERAPAMIL [Concomitant]
     Indication: ATHEROSCLEROSIS
     Route: 065
     Dates: start: 20011227, end: 20031001

REACTIONS (9)
  - ANXIETY [None]
  - ARTERIOSCLEROSIS [None]
  - BIOPSY [None]
  - CARDIAC DISORDER [None]
  - CAROTID ARTERY STENOSIS [None]
  - CORONARY ARTERY DISEASE [None]
  - OEDEMA PERIPHERAL [None]
  - TRANSIENT ISCHAEMIC ATTACK [None]
  - VENTRICULAR TACHYCARDIA [None]
